FAERS Safety Report 8029868-7 (Version None)
Quarter: 2012Q1

REPORT INFORMATION
  Report Type: 
  Country: None (occurrence: None)
  Receive Date: 20120106
  Receipt Date: 20120106
  Transmission Date: 20120608
  Serious: Yes (Life-Threatening, Hospitalization, Other)
  Sender: FDA-Public Use
  Company Number: None

PATIENT
  Sex: Female
  Weight: 107.9561 kg

DRUGS (1)
  1. ALLOPURINOL 100MG TAB [Suspect]
     Indication: GOUT
     Dosage: 100 MG 2 TAB PO DAILY BY MOUTH
     Route: 048
     Dates: start: 20110926

REACTIONS (14)
  - RASH GENERALISED [None]
  - PRURITUS [None]
  - LID LAG [None]
  - APPARENT DEATH [None]
  - FATIGUE [None]
  - FEELING HOT [None]
  - ERYTHEMA [None]
  - WHITE BLOOD CELL COUNT INCREASED [None]
  - SWOLLEN TONGUE [None]
  - RENAL DISORDER [None]
  - STAPHYLOCOCCAL INFECTION [None]
  - CARDIAC DISORDER [None]
  - SKIN EXFOLIATION [None]
  - LIVER DISORDER [None]
